FAERS Safety Report 22052935 (Version 5)
Quarter: 2023Q1

REPORT INFORMATION
  Report Type: Spontaneous
  Country: CZ (occurrence: CZ)
  Receive Date: 20230302
  Receipt Date: 20230331
  Transmission Date: 20230418
  Serious: Yes (Hospitalization, Other)
  Sender: FDA-Public Use
  Company Number: None

PATIENT
  Age: 53 Year
  Sex: Female

DRUGS (13)
  1. LEVETIRACETAM [Suspect]
     Active Substance: LEVETIRACETAM
     Indication: Migraine
     Dosage: UNK
  2. LEVETIRACETAM [Suspect]
     Active Substance: LEVETIRACETAM
     Indication: Off label use
  3. VALPROATE [Suspect]
     Active Substance: VALPROIC ACID
     Indication: Product used for unknown indication
     Dosage: 300 MILLIGRAM, QD (3X300 MG A DAY)
  4. VALPROATE [Suspect]
     Active Substance: VALPROIC ACID
     Dosage: 300 MILLIGRAM, ONCE DAILY (QD)
  5. TRAMADOL [Suspect]
     Active Substance: TRAMADOL
     Indication: Migraine without aura
     Dosage: UNK
     Route: 048
  6. GABAPENTIN [Suspect]
     Active Substance: GABAPENTIN
     Indication: Migraine
     Dosage: 500 MILLIGRAM, TID (3X500 MG A DAY)
  7. GABAPENTIN [Suspect]
     Active Substance: GABAPENTIN
     Indication: Off label use
  8. METOPROLOL [Suspect]
     Active Substance: METOPROLOL
     Indication: Migraine
     Dosage: 100 MILLIGRAM, BID (2X100 MG A DAY)
  9. METOPROLOL [Suspect]
     Active Substance: METOPROLOL
     Indication: Migraine without aura
     Dosage: 50 MILLIGRAM, BID (2X50 MG)
  10. TOPIRAMATE [Suspect]
     Active Substance: TOPIRAMATE
     Indication: Migraine
     Dosage: UNK
  11. DIHYDROERGOTAMINE MESYLATE [Suspect]
     Active Substance: DIHYDROERGOTAMINE MESYLATE
     Indication: Migraine without aura
     Dosage: UNK
     Route: 051
  12. IBUPROFEN [Suspect]
     Active Substance: IBUPROFEN
     Indication: Migraine without aura
     Dosage: UNK
     Route: 048
  13. AMITRIPTYLINE [Suspect]
     Active Substance: AMITRIPTYLINE
     Indication: Migraine
     Dosage: 25 MILLIGRAM, QD (25 MG A DAY)

REACTIONS (11)
  - Drug withdrawal syndrome [Recovered/Resolved]
  - Loss of consciousness [Recovered/Resolved]
  - Toxicity to various agents [Recovered/Resolved]
  - Hypotension [Recovered/Resolved]
  - Syncope [Unknown]
  - Intentional product misuse [Unknown]
  - Drug abuse [Unknown]
  - Therapeutic product effect incomplete [Unknown]
  - Drug ineffective [Unknown]
  - Off label use [Unknown]
  - Drug intolerance [Recovered/Resolved]
